FAERS Safety Report 7138751-0 (Version None)
Quarter: 2010Q4

REPORT INFORMATION
  Report Type: 
  Country: None (occurrence: None)
  Receive Date: 20101206
  Receipt Date: 20101124
  Transmission Date: 20110411
  Serious: Yes (Hospitalization, Disabling)
  Sender: FDA-Public Use
  Company Number: CH-GENENTECH-310202

PATIENT
  Age: 80 Year
  Sex: Male
  Weight: 60 kg

DRUGS (8)
  1. MABTHERA [Suspect]
     Indication: LYMPHOMA
     Dosage: 700 MG, Q3W
     Route: 041
     Dates: start: 20100614, end: 20100928
  2. ENDOXAN [Suspect]
     Indication: LYMPHOMA
     Dosage: 1300 MG, UNK
     Route: 041
     Dates: start: 20100614, end: 20100928
  3. ONCOVIN [Concomitant]
     Indication: LYMPHOMA
     Dosage: 2 MG, Q3W
     Route: 040
     Dates: start: 20100614, end: 20100928
  4. ADRIBLASTIN [Concomitant]
     Indication: LYMPHOMA
     Dosage: 90 MG, Q3W
     Route: 041
     Dates: start: 20100614, end: 20100928
  5. PREDNISONE [Concomitant]
     Indication: LYMPHOMA
     Dosage: 100 MG, UNK
     Route: 048
     Dates: start: 20100614, end: 20100928
  6. PREDNISONE [Concomitant]
     Dosage: UNK
     Route: 048
  7. ALLOPURINOL [Concomitant]
     Indication: LYMPHOMA
     Dosage: 300 MG, Q3W
     Route: 048
     Dates: start: 20100614, end: 20100928
  8. PANTOZOL [Concomitant]
     Indication: LYMPHOMA
     Dosage: 40 MG, UNK
     Route: 048

REACTIONS (3)
  - CONFUSIONAL STATE [None]
  - DYSPNOEA [None]
  - INTERSTITIAL LUNG DISEASE [None]
